FAERS Safety Report 18776947 (Version 1)
Quarter: 2021Q1

REPORT INFORMATION
  Report Type: Spontaneous
  Country: US (occurrence: US)
  Receive Date: 20210122
  Receipt Date: 20210122
  Transmission Date: 20210419
  Serious: Yes (Other)
  Sender: FDA-Public Use
  Company Number: US-SA-2021SA018528

PATIENT
  Sex: Male

DRUGS (2)
  1. ELIQUIS [Suspect]
     Active Substance: APIXABAN
  2. PLAVIX [Suspect]
     Active Substance: CLOPIDOGREL BISULFATE

REACTIONS (8)
  - Peripheral swelling [Unknown]
  - Glioblastoma [Unknown]
  - Peripheral coldness [Unknown]
  - Deep vein thrombosis [Unknown]
  - Nausea [Unknown]
  - Pulmonary embolism [Unknown]
  - Thrombosis [Unknown]
  - Dizziness postural [Unknown]
